FAERS Safety Report 8536510-5 (Version None)
Quarter: 2012Q3

REPORT INFORMATION
  Report Type: 
  Country: None (occurrence: None)
  Receive Date: 20120725
  Receipt Date: 20120723
  Transmission Date: 20120928
  Serious: Yes (Hospitalization)
  Sender: FDA-Public Use
  Company Number: PHHO2012US009522

PATIENT
  Sex: Female
  Weight: 90.3 kg

DRUGS (11)
  1. SOM230 [Suspect]
     Indication: THYROID CANCER
     Dosage: UNK
     Route: 058
     Dates: start: 20101208, end: 20120606
  2. VERAPAMIL [Concomitant]
  3. HYDRALAZINE HCL [Concomitant]
  4. DIOVAN [Concomitant]
  5. POTASSIUM CHLORIDE [Concomitant]
  6. METFORMIN HYDROCHLORIDE [Concomitant]
  7. LEVOXYL [Concomitant]
  8. ATROVENT [Concomitant]
  9. AFINITOR [Suspect]
     Indication: THYROID CANCER
     Dosage: 10 MG, QD
     Route: 048
     Dates: start: 20120411, end: 20120606
  10. LASIX [Concomitant]
  11. ADVAIR DISKUS 100/50 [Concomitant]

REACTIONS (3)
  - ANAEMIA [None]
  - DYSPNOEA [None]
  - DIABETIC KETOACIDOSIS [None]
